FAERS Safety Report 5821644-6 (Version None)
Quarter: 2008Q3

REPORT INFORMATION
  Report Type: 
  Country: None (occurrence: None)
  Receive Date: 20080724
  Receipt Date: 20080718
  Transmission Date: 20090109
  Serious: Yes (Hospitalization)
  Sender: FDA-Public Use
  Company Number: US-SANOFI-SYNTHELABO-F01200801124

PATIENT
  Sex: Female

DRUGS (11)
  1. BEVACIZUMAB [Suspect]
     Indication: COLON CANCER
     Route: 042
     Dates: start: 20080506, end: 20080506
  2. FLORINEF [Concomitant]
     Route: 065
  3. LORAZEPAM [Concomitant]
     Route: 065
  4. OXYCODONE HCL [Concomitant]
     Route: 065
  5. IMODIUM [Concomitant]
     Route: 065
  6. COMPAZINE [Concomitant]
     Route: 065
  7. VITAMIN B6 [Concomitant]
     Route: 065
  8. PAXIL [Concomitant]
     Route: 065
  9. FLUOROURACIL [Suspect]
     Dosage: UNK
     Route: 065
  10. LEUCOVORIN CALCIUM [Suspect]
     Dosage: UNK
     Route: 065
  11. OXALIPLATIN [Suspect]
     Indication: DRUG USE FOR UNKNOWN INDICATION
     Dosage: UNK
     Route: 065
     Dates: start: 20080506, end: 20080506

REACTIONS (1)
  - REVERSIBLE POSTERIOR LEUKOENCEPHALOPATHY SYNDROME [None]
